FAERS Safety Report 8621705-2 (Version None)
Quarter: 2012Q3

REPORT INFORMATION
  Report Type: 
  Country: None (occurrence: None)
  Receive Date: 20120821
  Receipt Date: 20120821
  Transmission Date: 20120928
  Serious: Yes (Other)
  Sender: FDA-Public Use
  Company Number: None

PATIENT
  Age: 63 Year
  Sex: Female
  Weight: 58.9676 kg

DRUGS (2)
  1. OXYCODONE, 30 MG, CARACO [Suspect]
  2. OXYCODONE 5MG COREPHARMA [Suspect]
     Dates: start: 20120810, end: 20120811

REACTIONS (4)
  - DYSPNOEA [None]
  - DYSARTHRIA [None]
  - DRUG DISPENSING ERROR [None]
  - DEPRESSED LEVEL OF CONSCIOUSNESS [None]
